FAERS Safety Report 8078054-3 (Version None)
Quarter: 2012Q1

REPORT INFORMATION
  Report Type: 
  Country: None (occurrence: None)
  Receive Date: 20120127
  Receipt Date: 20110106
  Transmission Date: 20120608
  Serious: No
  Sender: FDA-Public Use
  Company Number: US-ABBOTT-11P-163-0695983-00

PATIENT
  Sex: Male
  Weight: 89.892 kg

DRUGS (5)
  1. TOPROL-XL [Concomitant]
     Indication: HYPERTENSION
  2. ASPIRIN [Concomitant]
     Indication: PRODUCT USED FOR UNKNOWN INDICATION
     Dosage: ONE TABLET THREE TO FIVE TIMES A WEEK
  3. HUMIRA [Suspect]
     Indication: PSORIASIS
     Route: 050
     Dates: start: 20050101
  4. SIMVASTATIN [Concomitant]
     Indication: BLOOD CHOLESTEROL INCREASED
  5. TERAZOSIN HCL [Concomitant]
     Indication: PROSTATIC DISORDER

REACTIONS (2)
  - RASH MACULAR [None]
  - SKIN DISCOLOURATION [None]
